FAERS Safety Report 6297520-4 (Version None)
Quarter: 2009Q3

REPORT INFORMATION
  Report Type: 
  Country: None (occurrence: None)
  Receive Date: 20090804
  Receipt Date: 20090804
  Transmission Date: 20100115
  Serious: Yes (Hospitalization)
  Sender: FDA-Public Use
  Company Number: None

PATIENT
  Age: 97 Year
  Sex: Male

DRUGS (1)
  1. WARFARIN SODIUM [Suspect]
     Indication: HEART VALVE REPLACEMENT
     Dosage: 7.5 MG EVERY DAY PO
     Route: 048
     Dates: start: 19950808

REACTIONS (10)
  - ANAEMIA [None]
  - ASTHENIA [None]
  - COLOUR BLINDNESS [None]
  - DIZZINESS [None]
  - DRUG TOXICITY [None]
  - EPISTAXIS [None]
  - GLAUCOMA [None]
  - HAEMOPTYSIS [None]
  - INTERNATIONAL NORMALISED RATIO INCREASED [None]
  - PRODUCTIVE COUGH [None]
